FAERS Safety Report 23281189 (Version 3)
Quarter: 2024Q1

REPORT INFORMATION
  Report Type: Spontaneous
  Country: US (occurrence: US)
  Receive Date: 20231211
  Receipt Date: 20240212
  Transmission Date: 20240409
  Serious: Yes (Other)
  Sender: FDA-Public Use
  Company Number: US-ORGANON-O2312USA000487

PATIENT
  Age: 30 Year
  Sex: Female
  Weight: 181.86 kg

DRUGS (3)
  1. NEXPLANON [Suspect]
     Active Substance: ETONOGESTREL
     Indication: Contraception
     Dosage: 1 IMPLANT IN LEFT ARM
     Route: 059
     Dates: start: 20230404, end: 20230615
  2. NEXPLANON [Suspect]
     Active Substance: ETONOGESTREL
     Indication: Contraception
     Dosage: 1 DOSAGE FORM IN LEFT ARM
     Route: 065
     Dates: start: 20230615
  3. PROCARDIA [Concomitant]
     Active Substance: NIFEDIPINE
     Dosage: 30 MILLIGRAM, QD

REACTIONS (7)
  - Pregnancy with implant contraceptive [Not Recovered/Not Resolved]
  - Metabolic surgery [Unknown]
  - Weight decreased [Unknown]
  - Complication associated with device [Not Recovered/Not Resolved]
  - Device kink [Recovered/Resolved]
  - Unintended pregnancy [Not Recovered/Not Resolved]
  - Limb discomfort [Unknown]

NARRATIVE: CASE EVENT DATE: 20230101
